FAERS Safety Report 5421284-7 (Version None)
Quarter: 2007Q3

REPORT INFORMATION
  Report Type: 
  Country: None (occurrence: None)
  Receive Date: 20070821
  Receipt Date: 20070814
  Transmission Date: 20080115
  Serious: Yes (Other)
  Sender: FDA-Public Use
  Company Number: US-ELI_LILLY_AND_COMPANY-US200708002986

PATIENT
  Age: 53 Year
  Sex: Female

DRUGS (4)
  1. HUMULIN R [Suspect]
     Indication: DIABETES MELLITUS
  2. HUMALOG MIX 50/50 [Suspect]
     Indication: DIABETES MELLITUS
     Dosage: UNK, AS NEEDED
     Dates: start: 20060101
  3. AVANDIA [Concomitant]
  4. GLYBURIDE [Concomitant]
     Dosage: 4 UNK, UNK

REACTIONS (8)
  - BLOOD GLUCOSE DECREASED [None]
  - BLOOD GLUCOSE INCREASED [None]
  - EYE DISORDER [None]
  - EYE HAEMORRHAGE [None]
  - MALAISE [None]
  - MIDDLE INSOMNIA [None]
  - TREMOR [None]
  - VISUAL DISTURBANCE [None]
